FAERS Safety Report 4269429-9 (Version None)
Quarter: 2004Q1

REPORT INFORMATION
  Report Type: 
  Country: None (occurrence: None)
  Receive Date: 20040108
  Receipt Date: 20031229
  Transmission Date: 20041129
  Serious: Yes (Hospitalization)
  Sender: FDA-Public Use
  Company Number: BE-JNJFOC-20031001692

PATIENT
  Age: 75 Year
  Sex: Female
  Weight: 61 kg

DRUGS (15)
  1. PROPULSID [Suspect]
     Indication: DIABETIC GASTROPARESIS
     Dosage: SEE IMAGE
     Dates: end: 20030606
  2. PROPULSID [Suspect]
     Indication: DIABETIC GASTROPARESIS
     Dosage: SEE IMAGE
     Dates: start: 20030620
  3. DITROPAN [Concomitant]
  4. CARDIO ASPIRIN (ALL OTHER THERAPEUTIC PRODUCTS) [Concomitant]
  5. ZOCOR [Concomitant]
  6. HYPAN (NIFEDIPINE) [Concomitant]
  7. PLAVIX [Concomitant]
  8. CIPRAMIL (CITALOPRAM HYDROBROMIDE) [Concomitant]
  9. LEVOTHYROXINE SODIUM [Concomitant]
  10. LEXOTAN (BROMAZEPAM) [Concomitant]
  11. COAPPROVEL (KARVEA HCT) [Concomitant]
  12. MIXTARD (INITARD) [Concomitant]
  13. DISTRANEURIN (CLOMETHIAZOLE EDISILATE) [Concomitant]
  14. CEDOCARD (ISOSORBIDE DINITRATE) [Concomitant]
  15. DUPHALAC [Concomitant]

REACTIONS (5)
  - ELECTROCARDIOGRAM P WAVE ABNORMAL [None]
  - ELECTROCARDIOGRAM QT PROLONGED [None]
  - ELECTROCARDIOGRAM T WAVE ABNORMAL [None]
  - PULMONARY OEDEMA [None]
  - SINUS BRADYCARDIA [None]
